FAERS Safety Report 4272630-1 (Version None)
Quarter: 2004Q1

REPORT INFORMATION
  Report Type: 
  Country: None (occurrence: None)
  Receive Date: 20040114
  Receipt Date: 20040114
  Transmission Date: 20041129
  Serious: No
  Sender: FDA-Public Use
  Company Number: None

PATIENT
  Age: 75 Year
  Sex: Male
  Weight: 89.8122 kg

DRUGS (9)
  1. LEVAQUIN [Suspect]
     Indication: SINUSITIS
     Dosage: 500 MG PO QD
     Route: 048
     Dates: start: 20031220, end: 20031229
  2. TOPROL-XL [Concomitant]
  3. ATACAND [Concomitant]
  4. COUMADIN [Concomitant]
  5. PREDNISONE [Concomitant]
  6. TAMBOCOR [Concomitant]
  7. DIGITEK [Concomitant]
  8. NASACORT [Concomitant]
  9. CARDIZEM [Concomitant]

REACTIONS (1)
  - TENDON DISORDER [None]
